FAERS Safety Report 17293819 (Version 2)
Quarter: 2020Q1

REPORT INFORMATION
  Report Type: Spontaneous
  Country: CA (occurrence: CA)
  Receive Date: 20200121
  Receipt Date: 20200323
  Transmission Date: 20200409
  Serious: Yes (Other)
  Sender: FDA-Public Use
  Company Number: CA-PFIZER INC-2020005145

PATIENT
  Age: 76 Year
  Sex: Female

DRUGS (2)
  1. METHOTREXATE SODIUM. [Suspect]
     Active Substance: METHOTREXATE SODIUM
     Dosage: AT A LOWER DOSE
  2. METHOTREXATE SODIUM. [Suspect]
     Active Substance: METHOTREXATE SODIUM
     Dosage: UNK

REACTIONS (7)
  - Glossodynia [Unknown]
  - Myocardial infarction [Unknown]
  - Drug hypersensitivity [Unknown]
  - Tongue blistering [Unknown]
  - Lip blister [Unknown]
  - Stomatitis [Unknown]
  - Limb discomfort [Unknown]
